FAERS Safety Report 11003152 (Version 1)
Quarter: 2015Q2

REPORT INFORMATION
  Report Type: Spontaneous
  Country: IT (occurrence: IT)
  Receive Date: 20150409
  Receipt Date: 20150409
  Transmission Date: 20150821
  Serious: Yes (Other)
  Sender: FDA-Public Use
  Company Number: IT-AUROBINDO-AUR-APL-2015-03015

PATIENT
  Age: 3 Year
  Sex: Male

DRUGS (1)
  1. AMOXICILLIN. [Suspect]
     Active Substance: AMOXICILLIN
     Indication: PRODUCT USED FOR UNKNOWN INDICATION
     Dosage: 18 MG, DAILY
     Route: 048
     Dates: start: 20150319, end: 20150327

REACTIONS (2)
  - Drug ineffective [Recovering/Resolving]
  - Otitis media acute [Recovering/Resolving]

NARRATIVE: CASE EVENT DATE: 20150331
